FAERS Safety Report 16871942 (Version 5)
Quarter: 2020Q1

REPORT INFORMATION
  Report Type: Report from Study
  Country: FR (occurrence: FR)
  Receive Date: 20191001
  Receipt Date: 20200225
  Transmission Date: 20200409
  Serious: Yes (Death, Hospitalization, Other)
  Sender: FDA-Public Use
  Company Number: FR-BRISTOL-MYERS SQUIBB COMPANY-BMS-2019-018710

PATIENT
  Age: 68 Year
  Sex: Female

DRUGS (1)
  1. NIVOLUMAB [Suspect]
     Active Substance: NIVOLUMAB
     Indication: RENAL CELL CARCINOMA
     Dosage: UNK
     Route: 065
     Dates: start: 20171215, end: 20190122

REACTIONS (10)
  - Pain [Recovered/Resolved]
  - Back pain [Unknown]
  - Brain neoplasm [Not Recovered/Not Resolved]
  - Spinal cord infection [Recovered/Resolved]
  - Erectile dysfunction [Unknown]
  - Asthenia [Unknown]
  - Epilepsy [Not Recovered/Not Resolved]
  - Nausea [Unknown]
  - Malignant neoplasm progression [Fatal]
  - Vomiting [Unknown]

NARRATIVE: CASE EVENT DATE: 20190204
